FAERS Safety Report 10774626 (Version 1)
Quarter: 2015Q1

REPORT INFORMATION
  Report Type: Other
  Country: FI (occurrence: FI)
  Receive Date: 20150209
  Receipt Date: 20150209
  Transmission Date: 20150721
  Serious: Yes (Other)
  Sender: FDA-Public Use
  Company Number: FI-TAKEDA-2015TJP001496

PATIENT
  Age: 75 Year
  Sex: Male

DRUGS (6)
  1. ALFUZOSINI HYDROCHLORIDUM [Concomitant]
     Dosage: UNK
  2. GLIMEPIRIDUM [Concomitant]
     Dosage: UNK
  3. SIMVASTATINUM [Concomitant]
     Dosage: UNK
  4. RAMIPRILUM [Concomitant]
     Dosage: UNK
  5. COMPETACT [Suspect]
     Active Substance: METFORMIN HYDROCHLORIDE\PIOGLITAZONE HYDROCHLORIDE
     Indication: DIABETES MELLITUS
     Dosage: UNK UNK, BID
     Route: 048
     Dates: start: 20090101, end: 20150115
  6. METOPROLOLI SUCCINAS (2:1) [Concomitant]
     Dosage: UNK

REACTIONS (2)
  - Diabetes mellitus inadequate control [Unknown]
  - Bladder cancer [Unknown]

NARRATIVE: CASE EVENT DATE: 20120917
